FAERS Safety Report 15126322 (Version 3)
Quarter: 2018Q3

REPORT INFORMATION
  Report Type: Spontaneous
  Country: JP (occurrence: JP)
  Receive Date: 20180710
  Receipt Date: 20180727
  Transmission Date: 20181010
  Serious: Yes (Hospitalization, Other)
  Sender: FDA-Public Use
  Company Number: JP-GLAXOSMITHKLINE-JP2018JPN119172

PATIENT
  Age: 81 Year
  Sex: Male
  Weight: 54 kg

DRUGS (7)
  1. AVOLVE [Suspect]
     Active Substance: DUTASTERIDE
     Dosage: 0.5 MG, QD
     Route: 050
     Dates: start: 20180703, end: 20180704
  2. URIEF OD [Concomitant]
     Dosage: UNK
  3. ASACOL [Concomitant]
     Active Substance: MESALAMINE
     Dosage: UNK
  4. BISOPROLOL [Concomitant]
     Active Substance: BISOPROLOL
     Dosage: UNK
  5. AVOLVE [Suspect]
     Active Substance: DUTASTERIDE
     Dosage: UNK UNK, QD
     Route: 048
  6. MIYA?BM [Concomitant]
     Active Substance: CLOSTRIDIUM BUTYRICUM SPORES STRAIN M-55
     Dosage: UNK
  7. NEODOPASOL [Concomitant]
     Active Substance: BENSERAZIDE HYDROCHLORIDE\LEVODOPA
     Dosage: UNK

REACTIONS (3)
  - Cerebral infarction [Unknown]
  - Dysphagia [Unknown]
  - Product preparation error [Unknown]

NARRATIVE: CASE EVENT DATE: 20180620
